FAERS Safety Report 20658054 (Version 2)
Quarter: 2022Q2

REPORT INFORMATION
  Report Type: Spontaneous
  Country: US (occurrence: US)
  Receive Date: 20220331
  Receipt Date: 20220412
  Transmission Date: 20220721
  Serious: No
  Sender: FDA-Public Use
  Company Number: US-ADVANZ PHARMA-202203001807

PATIENT

DRUGS (1)
  1. HYDROXYCHLOROQUINE [Suspect]
     Active Substance: HYDROXYCHLOROQUINE
     Dosage: UNK

REACTIONS (7)
  - Dyspnoea [Unknown]
  - Daydreaming [Unknown]
  - Feeling abnormal [Unknown]
  - Dizziness [Unknown]
  - Rash [Unknown]
  - Headache [Unknown]
  - Drug ineffective [Unknown]
